FAERS Safety Report 5574872-1 (Version None)
Quarter: 2007Q4

REPORT INFORMATION
  Report Type: 
  Country: None (occurrence: None)
  Receive Date: 20071227
  Receipt Date: 20071220
  Transmission Date: 20080405
  Serious: Yes (Hospitalization)
  Sender: FDA-Public Use
  Company Number: US-JNJFOC-20061203308

PATIENT
  Sex: Male
  Weight: 98.88 kg

DRUGS (12)
  1. TMC114 [Suspect]
     Route: 048
  2. TMC114 [Suspect]
     Route: 048
  3. TMC114 [Suspect]
     Indication: HIV INFECTION
     Route: 048
  4. RITONAVIR [Suspect]
     Route: 048
  5. RITONAVIR [Suspect]
     Route: 048
  6. RITONAVIR [Suspect]
     Indication: HIV INFECTION
     Route: 048
  7. TENOFOVIR [Suspect]
     Indication: HIV INFECTION
     Route: 048
  8. LAMIVUDINE [Concomitant]
     Indication: HIV INFECTION
     Route: 048
  9. BACTRIM DS [Concomitant]
     Indication: ANTIFUNGAL PROPHYLAXIS
     Route: 048
  10. MULTI-VITAMIN [Concomitant]
     Indication: ROUTINE HEALTH MAINTENANCE
     Route: 048
  11. RISPERIDONE [Concomitant]
     Indication: DRUG THERAPY
     Route: 048
  12. DIVALPROEX SODIUM [Concomitant]
     Indication: DRUG THERAPY

REACTIONS (2)
  - CHOLELITHIASIS [None]
  - PANCREATITIS [None]
